FAERS Safety Report 7237437-1 (Version None)
Quarter: 2011Q1

REPORT INFORMATION
  Report Type: 
  Country: None (occurrence: None)
  Receive Date: 20110121
  Receipt Date: 20110111
  Transmission Date: 20110831
  Serious: Yes (Other)
  Sender: FDA-Public Use
  Company Number: US-JNJFOC-20110102968

PATIENT
  Age: 14 Year
  Sex: Female

DRUGS (10)
  1. INFLIXIMAB, RECOMBINANT [Suspect]
     Route: 042
  2. INFLIXIMAB, RECOMBINANT [Suspect]
     Route: 042
  3. INFLIXIMAB, RECOMBINANT [Suspect]
     Route: 042
  4. STEROIDS NOS [Concomitant]
  5. STEROIDS NOS [Concomitant]
  6. INFLIXIMAB, RECOMBINANT [Suspect]
     Indication: CROHN'S DISEASE
     Route: 042
  7. STEROIDS NOS [Concomitant]
  8. INFLIXIMAB, RECOMBINANT [Suspect]
     Route: 042
  9. MERCAPTOPURINE [Concomitant]
     Indication: CROHN'S DISEASE
  10. STEROIDS NOS [Concomitant]

REACTIONS (2)
  - RENAL FAILURE ACUTE [None]
  - HISTOPLASMOSIS [None]
